FAERS Safety Report 11993069 (Version 3)
Quarter: 2016Q1

REPORT INFORMATION
  Report Type: Spontaneous
  Country: IN (occurrence: IN)
  Receive Date: 20160203
  Receipt Date: 20160310
  Transmission Date: 20160526
  Serious: Yes (Other)
  Sender: FDA-Public Use
  Company Number: IN-ROCHE-1703161

PATIENT
  Sex: Female

DRUGS (1)
  1. AVASTIN [Suspect]
     Active Substance: BEVACIZUMAB
     Indication: DIABETIC RETINOPATHY
     Route: 050
     Dates: start: 20151230

REACTIONS (8)
  - Suspected transmission of an infectious agent via product [Unknown]
  - Lacrimation increased [Unknown]
  - Off label use [Unknown]
  - Overdose [Unknown]
  - Blindness [Unknown]
  - Eye swelling [Unknown]
  - Eye pain [Unknown]
  - Eye irritation [Unknown]
